FAERS Safety Report 4894670-1 (Version None)
Quarter: 2006Q1

REPORT INFORMATION
  Report Type: 
  Country: None (occurrence: None)
  Receive Date: 20060127
  Receipt Date: 20060123
  Transmission Date: 20060701
  Serious: Yes (Hospitalization)
  Sender: FDA-Public Use
  Company Number: CH-MERCK-0601CHE00021

PATIENT
  Age: 75 Year
  Sex: Female

DRUGS (5)
  1. MODURETIC 5-50 [Suspect]
     Route: 048
  2. ZOLOFT [Suspect]
     Route: 048
     Dates: start: 20050501, end: 20050601
  3. ALPRAZOLAM [Concomitant]
     Route: 048
  4. PREDNISONE [Concomitant]
     Route: 048
  5. FELODIPINE [Concomitant]
     Route: 048

REACTIONS (10)
  - AGITATION [None]
  - ASTHENIA [None]
  - DECREASED APPETITE [None]
  - DIARRHOEA [None]
  - ELECTROCARDIOGRAM ST SEGMENT DEPRESSION [None]
  - HYPERTENSION [None]
  - HYPERVENTILATION [None]
  - HYPOKALAEMIA [None]
  - HYPONATRAEMIA [None]
  - INSOMNIA [None]
